FAERS Safety Report 15099238 (Version 2)
Quarter: 2018Q3

REPORT INFORMATION
  Report Type: Spontaneous
  Country: US (occurrence: US)
  Receive Date: 20180702
  Receipt Date: 20180803
  Transmission Date: 20181010
  Serious: No
  Sender: FDA-Public Use
  Company Number: US-SUNOVION-2016SUN003274

PATIENT

DRUGS (3)
  1. LATUDA [Suspect]
     Active Substance: LURASIDONE HYDROCHLORIDE
     Dosage: UNK
  2. LATUDA [Suspect]
     Active Substance: LURASIDONE HYDROCHLORIDE
     Dosage: UNK
     Route: 048
  3. LITHIUM. [Concomitant]
     Active Substance: LITHIUM

REACTIONS (4)
  - Sleep disorder [Unknown]
  - Somnolence [Unknown]
  - Fatigue [Unknown]
  - Sedation [Unknown]
